FAERS Safety Report 9398564 (Version 1)
Quarter: 2013Q3

REPORT INFORMATION
  Report Type: Spontaneous
  Country: US (occurrence: US)
  Receive Date: 20130712
  Receipt Date: 20130712
  Transmission Date: 20140515
  Serious: Yes (Hospitalization)
  Sender: FDA-Public Use
  Company Number: US-ELI_LILLY_AND_COMPANY-US201307001969

PATIENT
  Sex: Female

DRUGS (11)
  1. HUMALOG LISPRO [Suspect]
     Indication: TYPE 2 DIABETES MELLITUS
     Dosage: UNK UNK, TID
     Dates: start: 2008
  2. HUMALOG LISPRO [Suspect]
     Dosage: UNK, PRN
     Dates: start: 2008
  3. LEVEMIR [Concomitant]
  4. LISINOPRIL [Concomitant]
  5. PRAVASTATIN [Concomitant]
  6. SERTRALINE [Concomitant]
  7. ASA [Concomitant]
     Dosage: 81 MG, UNK
  8. TRAMADOL/APAP [Concomitant]
  9. CENTRUM SILVER                     /01292501/ [Concomitant]
  10. VITAMIN E                          /00110501/ [Concomitant]
  11. FISH OIL [Concomitant]

REACTIONS (1)
  - Arthritis [Unknown]
